FAERS Safety Report 25263111 (Version 1)
Quarter: 2025Q2

REPORT INFORMATION
  Report Type: Spontaneous
  Country: US (occurrence: None)
  Receive Date: 20250501
  Receipt Date: 20250501
  Transmission Date: 20250717
  Serious: Yes (Hospitalization)
  Sender: FDA-CTU
  Company Number: None

PATIENT
  Age: 80 Year
  Sex: Female
  Weight: 58.42 kg

DRUGS (7)
  1. ERIVEDGE [Suspect]
     Active Substance: VISMODEGIB
     Indication: Basal cell carcinoma
     Dosage: FREQUENCY : DAILY;?
     Route: 048
     Dates: start: 20250422, end: 20250430
  2. ASPIRIN [Concomitant]
     Active Substance: ASPIRIN
  3. DONEPEZIL [Concomitant]
     Active Substance: DONEPEZIL
  4. LIVALO [Concomitant]
     Active Substance: PITAVASTATIN CALCIUM
  5. LOSARTAN [Concomitant]
     Active Substance: LOSARTAN
  6. METOPROLOL [Concomitant]
     Active Substance: METOPROLOL
  7. SYNTHROID [Concomitant]
     Active Substance: LEVOTHYROXINE SODIUM

REACTIONS (3)
  - Respiratory distress [None]
  - Dyspnoea [None]
  - Vomiting [None]
